FAERS Safety Report 13550520 (Version 5)
Quarter: 2017Q3

REPORT INFORMATION
  Report Type: Spontaneous
  Country: CH (occurrence: CH)
  Receive Date: 20170516
  Receipt Date: 20170706
  Transmission Date: 20171127
  Serious: Yes (Hospitalization)
  Sender: FDA-Public Use
  Company Number: CH-LPDUSPRD-20170582

PATIENT
  Age: 18 Year
  Sex: Female
  Weight: 61 kg

DRUGS (1)
  1. FERINJECT [Suspect]
     Active Substance: FERRIC CARBOXYMALTOSE
     Dosage: 1000 MG/250 NS (1 TO 1)
     Route: 041
     Dates: start: 20170420, end: 20170420

REACTIONS (21)
  - Paraesthesia [Unknown]
  - Loss of consciousness [Unknown]
  - Somnolence [Unknown]
  - Syncope [Unknown]
  - Emotional disorder [Unknown]
  - Paraesthesia oral [Unknown]
  - Dysphoria [Unknown]
  - Unresponsive to stimuli [Unknown]
  - Conversion disorder [Unknown]
  - Tachypnoea [Unknown]
  - Moaning [Unknown]
  - Circulatory collapse [Unknown]
  - Tremor [Unknown]
  - Hyperventilation [Unknown]
  - Presyncope [Unknown]
  - Asthenia [Unknown]
  - Fatigue [Unknown]
  - Yawning [Unknown]
  - Tachycardia [Unknown]
  - Hypertension [Unknown]
  - Drug intolerance [Unknown]

NARRATIVE: CASE EVENT DATE: 201704
